FAERS Safety Report 12631575 (Version 2)
Quarter: 2016Q3

REPORT INFORMATION
  Report Type: Spontaneous
  Country: US (occurrence: US)
  Receive Date: 20160808
  Receipt Date: 20160808
  Transmission Date: 20161109
  Serious: No
  Sender: FDA-Public Use
  Company Number: US-BEH-2015054745

PATIENT
  Sex: Female
  Weight: 81 kg

DRUGS (38)
  1. CIPRO [Concomitant]
     Active Substance: CIPROFLOXACIN HYDROCHLORIDE
  2. LMX [Concomitant]
     Active Substance: LIDOCAINE
  3. LACTOBACILLUS ACIDOPHILUS\LACTOBACILLUS BULGARICUS [Concomitant]
     Active Substance: LACTOBACILLUS ACIDOPHILUS\LACTOBACILLUS DELBRUECKII SUBSP. BULGARICUS
  4. METRONIDAZOLE. [Concomitant]
     Active Substance: METRONIDAZOLE
  5. CLOBETASOL [Concomitant]
     Active Substance: CLOBETASOL
  6. TESTOSTERONE. [Concomitant]
     Active Substance: TESTOSTERONE
  7. IPRATROPIUM BROMIDE. [Concomitant]
     Active Substance: IPRATROPIUM BROMIDE
  8. MULTIVITAMINS [Concomitant]
     Active Substance: VITAMINS
  9. MAPAP [Concomitant]
     Active Substance: ACETAMINOPHEN
  10. NIACIN. [Concomitant]
     Active Substance: NIACIN
  11. DEX4 [Concomitant]
  12. HIZENTRA [Suspect]
     Active Substance: HUMAN IMMUNOGLOBULIN G
     Indication: ASTHMA
     Dosage: 2 GM 10 ML VIAL
     Route: 058
  13. ACTOS [Concomitant]
     Active Substance: PIOGLITAZONE HYDROCHLORIDE
  14. FLUCONAZOLE. [Concomitant]
     Active Substance: FLUCONAZOLE
  15. VITAMIN D [Concomitant]
     Active Substance: CHOLECALCIFEROL
  16. SALINE [Concomitant]
     Active Substance: SODIUM CHLORIDE
  17. DESONIDE. [Concomitant]
     Active Substance: DESONIDE
  18. AMBIEN [Concomitant]
     Active Substance: ZOLPIDEM TARTRATE
  19. HIZENTRA [Suspect]
     Active Substance: HUMAN IMMUNOGLOBULIN G
     Indication: ASTHMA
     Dosage: 2 GM 10 ML VIAL
     Route: 058
  20. HIZENTRA [Suspect]
     Active Substance: HUMAN IMMUNOGLOBULIN G
     Indication: GASTROOESOPHAGEAL REFLUX DISEASE
     Dosage: 2 GM 10 ML VIAL
     Route: 058
  21. RANITIDINE. [Concomitant]
     Active Substance: RANITIDINE
  22. PROVENTIL [Concomitant]
     Active Substance: ALBUTEROL
  23. HIZENTRA [Suspect]
     Active Substance: HUMAN IMMUNOGLOBULIN G
     Indication: DIABETES MELLITUS
     Dosage: 2 GM 10 ML VIAL
     Route: 058
  24. DIPHENHYDRAMINE. [Concomitant]
     Active Substance: DIPHENHYDRAMINE
  25. ANUSOL NOS [Concomitant]
     Active Substance: BALSAM PERU\BENZYL BENZOATE\BISMUTH HYDROXIDE\BISMUTH SUBGALLATE\HYDROCORTISONE ACETATE\ZINC OXIDE
  26. ALIGN [Concomitant]
     Active Substance: BIFIDOBACTERIUM LONGUM SUBSP. INFANTIS
  27. ACETAMINOPHEN. [Concomitant]
     Active Substance: ACETAMINOPHEN
  28. EPIPEN [Concomitant]
     Active Substance: EPINEPHRINE
     Indication: ANAPHYLACTIC REACTION
  29. FEXOFENADINE [Concomitant]
     Active Substance: FEXOFENADINE\FEXOFENADINE HYDROCHLORIDE
  30. NEXIUM [Concomitant]
     Active Substance: ESOMEPRAZOLE MAGNESIUM
  31. SUDAFED [Concomitant]
     Active Substance: PSEUDOEPHEDRINE HYDROCHLORIDE
  32. VITAMIN B [Concomitant]
     Active Substance: VITAMIN B
  33. AMLODIPINE [Concomitant]
     Active Substance: AMLODIPINE BESYLATE
  34. LIPITOR [Concomitant]
     Active Substance: ATORVASTATIN CALCIUM
  35. LEVOFLOXACIN. [Concomitant]
     Active Substance: LEVOFLOXACIN
  36. FINASTERIDE. [Concomitant]
     Active Substance: FINASTERIDE
  37. FLUOROMETHOLONE. [Concomitant]
     Active Substance: FLUOROMETHOLONE
  38. BIOTIN [Concomitant]
     Active Substance: BIOTIN

REACTIONS (1)
  - Application site erythema [Unknown]
